FAERS Safety Report 5140460-4 (Version None)
Quarter: 2006Q4

REPORT INFORMATION
  Report Type: 
  Country: None (occurrence: None)
  Receive Date: 20061026
  Receipt Date: 20061026
  Transmission Date: 20070319
  Serious: Yes (Other)
  Sender: FDA-Public Use
  Company Number: None

PATIENT
  Age: 65 Year
  Sex: Male
  Weight: 81.6475 kg

DRUGS (19)
  1. LYRICA [Suspect]
     Indication: NEURALGIA
     Dosage: 100MG 0830-1400-2200 PO
     Route: 048
     Dates: start: 20060928, end: 20061002
  2. LYRICA [Suspect]
     Indication: NEURALGIA
     Dosage: 100MG QAM + QHS PO
     Route: 048
     Dates: start: 20061002, end: 20061004
  3. APAP TAB [Concomitant]
  4. ARICEPT [Concomitant]
  5. BETHANECHOL [Concomitant]
  6. CALCIUM CARB/VIT D [Concomitant]
  7. DIGOXIN [Concomitant]
  8. DOCUSATE NA [Concomitant]
  9. FLOMAX [Concomitant]
  10. LEVOTHYROXINE SODIUM [Concomitant]
  11. LIPITOR [Concomitant]
  12. METAMUCIL [Concomitant]
  13. NAMENDA [Concomitant]
  14. PLAVIX [Concomitant]
  15. MIRALAX [Concomitant]
  16. FINASTERIDE [Concomitant]
  17. VALPROIC ACID [Concomitant]
  18. VENLAFAXIINE HCL [Concomitant]
  19. APAP TAB [Concomitant]

REACTIONS (1)
  - PULMONARY OEDEMA [None]
